FAERS Safety Report 21535424 (Version 1)
Quarter: 2022Q4

REPORT INFORMATION
  Report Type: Spontaneous
  Country: US (occurrence: US)
  Receive Date: 20221101
  Receipt Date: 20221101
  Transmission Date: 20230113
  Serious: No
  Sender: FDA-Public Use
  Company Number: US-MIGRATION_PFIZER-2022BHV002252

PATIENT
  Age: 55 Year
  Sex: Female
  Weight: 88.076 kg

DRUGS (1)
  1. NURTEC ODT [Suspect]
     Active Substance: RIMEGEPANT SULFATE
     Indication: Migraine
     Dosage: 1 TABLET
     Route: 060
     Dates: start: 20220818, end: 20220818

REACTIONS (3)
  - Urticaria [Recovering/Resolving]
  - Product after taste [Unknown]
  - Product use complaint [Unknown]

NARRATIVE: CASE EVENT DATE: 20220818
